FAERS Safety Report 12432226 (Version 1)
Quarter: 2016Q2

REPORT INFORMATION
  Report Type: Other
  Country: FR (occurrence: FR)
  Receive Date: 20160603
  Receipt Date: 20160603
  Transmission Date: 20160815
  Serious: Yes (Death, Life-Threatening, Hospitalization, Other)
  Sender: FDA-Public Use
  Company Number: FR-LUPIN PHARMACEUTICALS INC.-2016-02349

PATIENT
  Age: 16 Year
  Sex: Female

DRUGS (5)
  1. COLCHICINE. [Suspect]
     Active Substance: COLCHICINE
     Indication: FAMILIAL MEDITERRANEAN FEVER
     Route: 065
  2. COLCHICINE. [Suspect]
     Active Substance: COLCHICINE
     Dosage: 50-60 TABLETS
     Route: 048
  3. PREDNISONE. [Suspect]
     Active Substance: PREDNISONE
     Indication: PRODUCT USED FOR UNKNOWN INDICATION
     Route: 048
  4. FENOFIBRATE. [Suspect]
     Active Substance: FENOFIBRATE
     Indication: PRODUCT USED FOR UNKNOWN INDICATION
     Route: 048
  5. IBUPROFEN. [Suspect]
     Active Substance: IBUPROFEN
     Indication: PRODUCT USED FOR UNKNOWN INDICATION
     Route: 048

REACTIONS (12)
  - Suicide attempt [Fatal]
  - Metabolic acidosis [Unknown]
  - Overdose [Fatal]
  - Leukostasis syndrome [Unknown]
  - Multiple organ dysfunction syndrome [Unknown]
  - Vomiting [Unknown]
  - Respiratory distress [Unknown]
  - Thrombocytopenia [Unknown]
  - Cardiac failure [Fatal]
  - Cardiogenic shock [Unknown]
  - Haemorrhage [Unknown]
  - Disseminated intravascular coagulation [Unknown]
